FAERS Safety Report 21703943 (Version 1)
Quarter: 2022Q4

REPORT INFORMATION
  Report Type: Report from Study
  Country: BR (occurrence: BR)
  Receive Date: 20221209
  Receipt Date: 20221209
  Transmission Date: 20230113
  Serious: Yes (Other)
  Sender: FDA-Public Use
  Company Number: BR-ABBVIE-4229536

PATIENT
  Sex: Female
  Weight: 75 kg

DRUGS (1)
  1. RINVOQ [Suspect]
     Active Substance: UPADACITINIB
     Indication: Rheumatoid arthritis
     Dosage: 1 TABLET?FREQUENCY: AT NIGHT? STOP DATE TEXT: OCT OR NOV-2022
     Route: 048
     Dates: start: 20211026

REACTIONS (2)
  - Laboratory test abnormal [Unknown]
  - Rheumatoid arthritis [Unknown]
